FAERS Safety Report 19566305 (Version 1)
Quarter: 2021Q3

REPORT INFORMATION
  Report Type: Report from Study
  Country: US (occurrence: US)
  Receive Date: 20210715
  Receipt Date: 20210715
  Transmission Date: 20211014
  Serious: Yes (Hospitalization, Other)
  Sender: FDA-Public Use
  Company Number: US-TAKEDA-2021TUS039406

PATIENT
  Age: 71 Year
  Sex: Female

DRUGS (20)
  1. TEDUGLUTIDE [Suspect]
     Active Substance: TEDUGLUTIDE
     Dosage: 0.5 MILLIGRAM,(0.5MG/KG), 3/WEEK
     Route: 065
     Dates: start: 20181008
  2. LOPERAMIDE [Concomitant]
     Active Substance: LOPERAMIDE
     Indication: DIARRHOEA
     Dosage: 15 UNK, PER EACH MEAL
     Route: 048
     Dates: start: 20190323
  3. TEDUGLUTIDE [Suspect]
     Active Substance: TEDUGLUTIDE
     Indication: SHORT-BOWEL SYNDROME
     Dosage: 5.0 MILLIGRAM,(0.05MG/KG), 4/WEEK
     Route: 065
     Dates: start: 20140414
  4. TEDUGLUTIDE [Suspect]
     Active Substance: TEDUGLUTIDE
     Dosage: 0.5 MILLIGRAM,(0.5MG/KG), 4/WEEK
     Route: 065
     Dates: start: 20190326
  5. TEDUGLUTIDE [Suspect]
     Active Substance: TEDUGLUTIDE
     Indication: SHORT-BOWEL SYNDROME
     Dosage: 5.0 MILLIGRAM,(0.05MG/KG), 4/WEEK
     Route: 065
     Dates: start: 20140414
  6. TEDUGLUTIDE [Suspect]
     Active Substance: TEDUGLUTIDE
     Indication: SHORT-BOWEL SYNDROME
     Dosage: 5.0 MILLIGRAM,(0.05MG/KG), 4/WEEK
     Route: 065
     Dates: start: 20140414
  7. TEDUGLUTIDE [Suspect]
     Active Substance: TEDUGLUTIDE
     Dosage: 5.0 MILLIGRAM, (0.05MG/KG),4/WEEK
     Route: 065
     Dates: start: 2019
  8. TEDUGLUTIDE [Suspect]
     Active Substance: TEDUGLUTIDE
     Dosage: 5.0 MILLIGRAM, (0.05MG/KG),4/WEEK
     Route: 065
     Dates: start: 2019
  9. CREON [Concomitant]
     Active Substance: PANCRELIPASE AMYLASE\PANCRELIPASE LIPASE\PANCRELIPASE PROTEASE
     Indication: PANCREATIC ENZYMES
     Dosage: 12000 UNITS, UP TO 10?12 A DAY
     Route: 048
     Dates: start: 20190326
  10. TEDUGLUTIDE [Suspect]
     Active Substance: TEDUGLUTIDE
     Dosage: 0.5 MILLIGRAM,(0.5MG/KG), 4/WEEK
     Route: 065
     Dates: start: 20190326
  11. TEDUGLUTIDE [Suspect]
     Active Substance: TEDUGLUTIDE
     Dosage: 0.5 MILLIGRAM,(0.5MG/KG), 4/WEEK
     Route: 065
     Dates: start: 20190326
  12. TEDUGLUTIDE [Suspect]
     Active Substance: TEDUGLUTIDE
     Dosage: 0.5 MILLIGRAM,(0.5MG/KG), 3/WEEK
     Route: 065
     Dates: start: 20181008
  13. TEDUGLUTIDE [Suspect]
     Active Substance: TEDUGLUTIDE
     Dosage: 5.0 MILLIGRAM, (0.05MG/KG),4/WEEK
     Route: 065
     Dates: start: 2019
  14. TEDUGLUTIDE [Suspect]
     Active Substance: TEDUGLUTIDE
     Dosage: 5.0 MILLIGRAM, (0.05MG/KG),4/WEEK
     Route: 065
     Dates: start: 2019
  15. TEDUGLUTIDE [Suspect]
     Active Substance: TEDUGLUTIDE
     Indication: SHORT-BOWEL SYNDROME
     Dosage: 5.0 MILLIGRAM,(0.05MG/KG), 4/WEEK
     Route: 065
     Dates: start: 20140414
  16. TEDUGLUTIDE [Suspect]
     Active Substance: TEDUGLUTIDE
     Dosage: 0.5 MILLIGRAM,(0.5MG/KG), 3/WEEK
     Route: 065
     Dates: start: 20181008
  17. TEDUGLUTIDE [Suspect]
     Active Substance: TEDUGLUTIDE
     Dosage: 0.5 MILLIGRAM,(0.5MG/KG), 3/WEEK
     Route: 065
     Dates: start: 20181008
  18. BOTULINUM TOXIN TYPE A [Concomitant]
     Active Substance: BOTULINUM TOXIN TYPE A
     Indication: URINARY INCONTINENCE
     Dosage: 200 UNIT, UNK
     Route: 058
     Dates: start: 20190320
  19. DIPHENOXYLATE/ATROPINE [Concomitant]
     Active Substance: ATROPINE\DIPHENOXYLATE
     Indication: DIARRHOEA
     Dosage: 2.0 MILLIGRAM, PRN
     Route: 048
     Dates: start: 20190326
  20. TEDUGLUTIDE [Suspect]
     Active Substance: TEDUGLUTIDE
     Dosage: 0.5 MILLIGRAM,(0.5MG/KG), 4/WEEK
     Route: 065
     Dates: start: 20190326

REACTIONS (4)
  - Abdominal pain [Recovered/Resolved]
  - Splenomegaly [Recovered/Resolved]
  - Pneumonia [Recovered/Resolved]
  - Abdominal distension [Recovered/Resolved]

NARRATIVE: CASE EVENT DATE: 20201121
